FAERS Safety Report 11126542 (Version 1)
Quarter: 2015Q2

REPORT INFORMATION
  Report Type: Spontaneous
  Country: US (occurrence: US)
  Receive Date: 20150520
  Receipt Date: 20150520
  Transmission Date: 20150821
  Serious: Yes (Hospitalization)
  Sender: FDA-Public Use
  Company Number: US-ACTELION-A-US2015-118268

PATIENT
  Age: 68 Year
  Sex: Female

DRUGS (20)
  1. VALCHLOR [Suspect]
     Active Substance: MECHLORETHAMINE
     Indication: MYCOSIS FUNGOIDES
     Dosage: UNK UNK, QD
     Route: 061
     Dates: start: 20150518
  2. ZOFRAN [Concomitant]
     Active Substance: ONDANSETRON HYDROCHLORIDE
  3. GLIMEPIRIDE. [Concomitant]
     Active Substance: GLIMEPIRIDE
  4. COREG [Concomitant]
     Active Substance: CARVEDILOL
  5. GABAPENTIN. [Concomitant]
     Active Substance: GABAPENTIN
  6. FENOFIBRATE. [Concomitant]
     Active Substance: FENOFIBRATE
  7. BENICAR [Concomitant]
     Active Substance: OLMESARTAN MEDOXOMIL
  8. EUCERIN [Concomitant]
     Active Substance: ENSULIZOLE\EUCERIN\OCTINOXATE\OCTISALATE\TITANIUM DIOXIDE\ZINC OXIDE
  9. CLARITIN [Concomitant]
     Active Substance: LORATADINE
  10. LIPITOR [Concomitant]
     Active Substance: ATORVASTATIN CALCIUM
  11. TRIAMCINOLONE ACETONIDE. [Concomitant]
     Active Substance: TRIAMCINOLONE ACETONIDE
  12. SYNTHROID [Concomitant]
     Active Substance: LEVOTHYROXINE SODIUM
  13. CLOBETASOL [Concomitant]
     Active Substance: CLOBETASOL
  14. ACYCLOVIR. [Concomitant]
     Active Substance: ACYCLOVIR
  15. PREDNISONE. [Concomitant]
     Active Substance: PREDNISONE
  16. ATARAX [Concomitant]
     Active Substance: HYDROXYZINE\HYDROXYZINE HYDROCHLORIDE
  17. LEXAPRO [Concomitant]
     Active Substance: ESCITALOPRAM OXALATE
  18. XANAX [Concomitant]
     Active Substance: ALPRAZOLAM
  19. GLUCOPHAGE [Concomitant]
     Active Substance: METFORMIN HYDROCHLORIDE
  20. ASPIRIN. [Concomitant]
     Active Substance: ASPIRIN

REACTIONS (1)
  - Sepsis [Not Recovered/Not Resolved]
